FAERS Safety Report 5026295-1 (Version None)
Quarter: 2006Q2

REPORT INFORMATION
  Report Type: 
  Country: None (occurrence: None)
  Receive Date: 20060426
  Receipt Date: 20060119
  Transmission Date: 20061013
  Serious: Yes (Other)
  Sender: FDA-Public Use
  Company Number: 2006012431

PATIENT
  Age: 71 Year
  Sex: Male
  Weight: 107.9561 kg

DRUGS (12)
  1. LYRICA [Suspect]
     Indication: DIABETIC NEUROPATHY
     Dosage: 150 MG (50 MG,3 IN 1 D)
  2. DILTIAZEM [Concomitant]
  3. OXYCONTIN [Concomitant]
  4. GLUCOVANCE [Concomitant]
  5. NORTRIPTYLINE HCL [Concomitant]
  6. NEXIUM [Concomitant]
  7. SIMVASTATIN [Concomitant]
  8. ASPIRIN [Concomitant]
  9. VALSARTAN [Concomitant]
  10. FUROSEMIDE [Concomitant]
  11. ACTOS [Concomitant]
  12. ZELNORM [Concomitant]

REACTIONS (2)
  - DRUG INEFFECTIVE [None]
  - INTENTIONAL DRUG MISUSE [None]
